FAERS Safety Report 7400352-4 (Version None)
Quarter: 2011Q2

REPORT INFORMATION
  Report Type: 
  Country: None (occurrence: None)
  Receive Date: 20110407
  Receipt Date: 20110404
  Transmission Date: 20111010
  Serious: Yes (Hospitalization)
  Sender: FDA-Public Use
  Company Number: ES-BRISTOL-MYERS SQUIBB COMPANY-15168743

PATIENT
  Age: 68 Year
  Sex: Female

DRUGS (4)
  1. TAXOL [Suspect]
     Indication: BREAST CANCER
     Dosage: DURATION:5
     Route: 042
     Dates: start: 20050923
  2. EUTIROX [Concomitant]
  3. NOCTAMID [Concomitant]
  4. NEORECORMON [Concomitant]

REACTIONS (1)
  - LUNG INFECTION [None]
